FAERS Safety Report 4457158-8 (Version None)
Quarter: 2004Q3

REPORT INFORMATION
  Report Type: 
  Country: None (occurrence: None)
  Receive Date: 20040825
  Receipt Date: 20040503
  Transmission Date: 20050211
  Serious: No
  Sender: FDA-Public Use
  Company Number: 206029

PATIENT
  Age: 50 Year
  Sex: Female
  Weight: 150 kg

DRUGS (1)
  1. RAPTIVA [Suspect]
     Indication: PSORIASIS
     Dosage: 70 MG, 1/WEEK SUBCUTANEOUS
     Route: 058
     Dates: start: 20030313

REACTIONS (1)
  - MOUTH ULCERATION [None]
